FAERS Safety Report 11315141 (Version 2)
Quarter: 2015Q3

REPORT INFORMATION
  Report Type: Report from Study
  Country: PL (occurrence: PL)
  Receive Date: 20150727
  Receipt Date: 20150810
  Transmission Date: 20151125
  Serious: Yes (Other)
  Sender: FDA-Public Use
  Company Number: PHHY2015PL086328

PATIENT
  Sex: Female

DRUGS (3)
  1. SANDOSTATIN LAR DEPOT [Suspect]
     Active Substance: OCTREOTIDE ACETATE
     Indication: ACROMEGALY
     Dosage: 20 MG, QMO
     Route: 030
     Dates: start: 200909
  2. SANDOSTATIN LAR DEPOT [Suspect]
     Active Substance: OCTREOTIDE ACETATE
     Dosage: 40 MG, QMO
     Route: 030
     Dates: start: 201404
  3. SANDOSTATIN LAR DEPOT [Suspect]
     Active Substance: OCTREOTIDE ACETATE
     Dosage: 30 MG, QMO
     Route: 030
     Dates: start: 201001

REACTIONS (26)
  - Gastritis [Unknown]
  - Goitre [Unknown]
  - Malaise [Unknown]
  - Adrenal adenoma [Unknown]
  - Spinal osteoarthritis [Unknown]
  - Polyp [Unknown]
  - Asthenia [Unknown]
  - Abdominal neoplasm [Unknown]
  - Haemorrhoids [Unknown]
  - Calculus urinary [Unknown]
  - Adenocarcinoma pancreas [Unknown]
  - Pancreatic cyst [Unknown]
  - Gastroduodenitis [Unknown]
  - Primary hyperthyroidism [Unknown]
  - Drug ineffective [Unknown]
  - Diabetes mellitus [Unknown]
  - Osteoarthritis [Unknown]
  - Hypertension [Unknown]
  - Multiple endocrine neoplasia Type 1 [Unknown]
  - Nephrolithiasis [Unknown]
  - Carbohydrate antigen 19-9 increased [Unknown]
  - Pituitary tumour benign [Unknown]
  - Cardiac arrest [Unknown]
  - Parathyroid tumour benign [Unknown]
  - Cholelithiasis [Unknown]
  - Gait disturbance [Unknown]

NARRATIVE: CASE EVENT DATE: 200911
